FAERS Safety Report 8158579-2 (Version None)
Quarter: 2012Q1

REPORT INFORMATION
  Report Type: 
  Country: None (occurrence: None)
  Receive Date: 20120223
  Receipt Date: 20120215
  Transmission Date: 20120608
  Serious: Yes (Hospitalization)
  Sender: FDA-Public Use
  Company Number: US-BAYER-2011-118209

PATIENT
  Age: 45 Year
  Sex: Female
  Weight: 79.365 kg

DRUGS (6)
  1. YASMIN [Suspect]
     Indication: CONTRACEPTION
     Dosage: UNK
     Dates: start: 19980101, end: 20090101
  2. DROSPIRENONE AND ETHINYL ESTRADIOL [Suspect]
     Indication: CONTRACEPTION
     Dosage: UNK
     Route: 048
     Dates: start: 19980101, end: 20090101
  3. ASCORBIC ACID [Concomitant]
     Dosage: UNK
     Dates: start: 19900101, end: 20110101
  4. MIGRAINE [Concomitant]
     Dosage: UNK
     Dates: start: 20020101, end: 20110101
  5. AMOXICILLIN [Concomitant]
     Dosage: UNK
     Dates: start: 20091001
  6. HYDROCODONE BITARTRATE [Concomitant]
     Dosage: UNK
     Dates: start: 20091016

REACTIONS (4)
  - INJURY [None]
  - CHOLECYSTITIS CHRONIC [None]
  - CHOLELITHIASIS [None]
  - MENTAL DISORDER [None]
